FAERS Safety Report 25263456 (Version 1)
Quarter: 2025Q2

REPORT INFORMATION
  Report Type: Spontaneous
  Country: US (occurrence: None)
  Receive Date: 20250501
  Receipt Date: 20250501
  Transmission Date: 20250717
  Serious: Yes (Hospitalization)
  Sender: FDA-CTU
  Company Number: None

PATIENT
  Age: 49 Year
  Sex: Female
  Weight: 74.25 kg

DRUGS (1)
  1. ENOXAPARIN SODIUM [Suspect]
     Active Substance: ENOXAPARIN SODIUM
     Indication: Pancreatic operation
     Dosage: OTHER QUANTITY : 30 INJECTION(S);?FREQUENCY : AT BEDTIME;?
     Route: 058
     Dates: start: 20250417, end: 20250429

REACTIONS (4)
  - Chest pain [None]
  - Chest discomfort [None]
  - Blood pressure increased [None]
  - Erythema [None]

NARRATIVE: CASE EVENT DATE: 20250428
